FAERS Safety Report 6198749-6 (Version None)
Quarter: 2009Q2

REPORT INFORMATION
  Report Type: 
  Country: None (occurrence: None)
  Receive Date: 20090521
  Receipt Date: 20090518
  Transmission Date: 20091009
  Serious: Yes (Death)
  Sender: FDA-Public Use
  Company Number: US-GILEAD-2009-0022027

PATIENT
  Sex: Female
  Weight: 62.652 kg

DRUGS (10)
  1. LETAIRIS [Suspect]
     Indication: PULMONARY ARTERIAL HYPERTENSION
     Route: 048
     Dates: start: 20080318
  2. COUMADIN [Concomitant]
  3. HIDEAWAY OXYGEN SYSTEM [Concomitant]
  4. METOPROLOL SUCCINATE [Concomitant]
  5. DILTAZEM ER [Concomitant]
  6. TORSEMIDE [Concomitant]
  7. POT CHLORIDE [Concomitant]
  8. LUMIGAN [Concomitant]
  9. TRUSOPT [Concomitant]
  10. ALPHAGAN P [Concomitant]

REACTIONS (1)
  - DEATH [None]
